FAERS Safety Report 7460137-X (Version None)
Quarter: 2011Q2

REPORT INFORMATION
  Report Type: 
  Country: None (occurrence: None)
  Receive Date: 20110427
  Receipt Date: 20110421
  Transmission Date: 20111010
  Serious: Yes (Other)
  Sender: FDA-Public Use
  Company Number: A0923982A

PATIENT
  Age: 77 Year
  Sex: Female

DRUGS (1)
  1. SIMETHICONE (SIMETHICONE) (FORMULATION UNKNOWN) [Suspect]
     Indication: FLATULENCE
     Dates: start: 20110420, end: 20110420

REACTIONS (2)
  - RECTAL HAEMORRHAGE [None]
  - DIARRHOEA [None]
